FAERS Safety Report 4708445-7 (Version None)
Quarter: 2005Q3

REPORT INFORMATION
  Report Type: 
  Country: None (occurrence: None)
  Receive Date: 20050707
  Receipt Date: 20050630
  Transmission Date: 20060218
  Serious: Yes (Hospitalization, Other)
  Sender: FDA-Public Use
  Company Number: US-BRISTOL-MYERS SQUIBB COMPANY-13022322

PATIENT
  Age: 56 Year
  Sex: Male
  Weight: 80 kg

DRUGS (2)
  1. CETUXIMAB [Suspect]
     Indication: PANCREATIC CARCINOMA
     Dosage: INITIAL TX DATE: 27-APR-05/TOTAL DOSE ADM THIS COURSE:400MG/WK 9 TX HELD/DECISION PENDING ON STUDY.
     Route: 042
     Dates: start: 20050622, end: 20050622
  2. GEMCITABINE [Suspect]
     Indication: PANCREATIC CARCINOMA
     Dosage: INITIAL TX DATE: 27-APR-05/GIVEN EVERY 3WKS WITH ONE WK OF REST/TOTAL DOSE ADM THIS COURSE: 1500 MG.
     Route: 042
     Dates: start: 20050622, end: 20050622

REACTIONS (4)
  - DYSPNOEA [None]
  - HYPOALBUMINAEMIA [None]
  - HYPOCALCAEMIA [None]
  - OEDEMA PERIPHERAL [None]
